FAERS Safety Report 24968450 (Version 1)
Quarter: 2025Q1

REPORT INFORMATION
  Report Type: Spontaneous
  Country: DK (occurrence: DK)
  Receive Date: 20250214
  Receipt Date: 20250214
  Transmission Date: 20250408
  Serious: Yes (Hospitalization, Other)
  Sender: NOVARTIS
  Company Number: None

PATIENT
  Age: 45 Year
  Sex: Female

DRUGS (1)
  1. KESIMPTA [Suspect]
     Active Substance: OFATUMUMAB
     Indication: Multiple sclerosis
     Dosage: 20 MG, Q4W
     Route: 058
     Dates: start: 20230202, end: 20241123

REACTIONS (13)
  - Meningitis [Recovering/Resolving]
  - Fatigue [Recovered/Resolved]
  - Pyrexia [Unknown]
  - Vomiting [Unknown]
  - Nausea [Unknown]
  - Abdominal pain [Unknown]
  - Rash [Unknown]
  - Influenza like illness [Recovered/Resolved]
  - Headache [Unknown]
  - Hyperacusis [Unknown]
  - Photophobia [Unknown]
  - Weight decreased [Unknown]
  - Myalgia [Recovered/Resolved]

NARRATIVE: CASE EVENT DATE: 20240101
